FAERS Safety Report 4318502-5 (Version None)
Quarter: 2004Q1

REPORT INFORMATION
  Report Type: 
  Country: None (occurrence: None)
  Receive Date: 20040318
  Receipt Date: 20020109
  Transmission Date: 20041129
  Serious: Yes (Hospitalization)
  Sender: FDA-Public Use
  Company Number: US-BRISTOL-MYERS SQUIBB COMPANY-11657830

PATIENT
  Age: 32 Year
  Sex: Male

DRUGS (3)
  1. BMS224818 [Concomitant]
     Route: 042
     Dates: start: 20010731, end: 20011219
  2. MYCOPHENOLATE MOFETIL [Suspect]
     Route: 048
     Dates: start: 20010731, end: 20020105
  3. DECORTIN [Suspect]
     Route: 048

REACTIONS (1)
  - PYREXIA [None]
